FAERS Safety Report 6270619-4 (Version None)
Quarter: 2009Q3

REPORT INFORMATION
  Report Type: 
  Country: None (occurrence: None)
  Receive Date: 20090716
  Receipt Date: 20090708
  Transmission Date: 20100115
  Serious: Yes (Other)
  Sender: FDA-Public Use
  Company Number: US-PFIZER INC-2008065665

PATIENT
  Sex: Male
  Weight: 73 kg

DRUGS (20)
  1. BLINDED *NO SUBJECT DRUG [Suspect]
     Indication: HIV INFECTION
     Dosage: 600 MG, 2X/DAY
     Route: 048
     Dates: start: 20080428
  2. BLINDED *PLACEBO [Suspect]
     Indication: HIV INFECTION
     Dosage: 600 MG, 2X/DAY
     Route: 048
     Dates: start: 20080428
  3. BLINDED MARAVIROC [Suspect]
     Indication: HIV INFECTION
     Dosage: 600 MG, 2X/DAY
     Route: 048
     Dates: start: 20080428
  4. ETRAVIRINE [Concomitant]
     Indication: HIV INFECTION
     Route: 048
     Dates: start: 20080428
  5. ISENTRESS [Concomitant]
     Indication: HIV INFECTION
     Route: 048
     Dates: start: 20080428
  6. FLONASE [Concomitant]
     Route: 048
     Dates: start: 19951101
  7. ALBUTEROL [Concomitant]
     Route: 048
     Dates: start: 20021201
  8. ALLEGRA [Concomitant]
     Route: 048
     Dates: start: 20040806
  9. BENADRYL [Concomitant]
     Route: 048
     Dates: start: 20040101
  10. MULTI-VITAMINS [Concomitant]
     Route: 048
     Dates: start: 20050101
  11. LEXAPRO [Concomitant]
     Route: 048
     Dates: start: 20050701
  12. GEMFIBROZIL [Concomitant]
     Route: 048
     Dates: start: 20040617
  13. CYANOCOBALAMIN [Concomitant]
     Route: 030
     Dates: start: 20050820
  14. ALLOPURINOL [Concomitant]
     Route: 048
     Dates: start: 20050501
  15. ASCORBIC ACID [Concomitant]
     Route: 048
     Dates: start: 20040101
  16. IRON [Concomitant]
     Route: 048
     Dates: start: 20040101
  17. TOPROL-XL [Concomitant]
     Route: 048
     Dates: start: 20040101
  18. OMEGA-3 MARINE TRIGLYCERIDES [Concomitant]
     Route: 048
     Dates: start: 20071110
  19. INSULIN [Concomitant]
     Route: 048
     Dates: start: 20080410
  20. NEXIUM [Concomitant]
     Route: 048
     Dates: start: 20080501

REACTIONS (1)
  - TONGUE NEOPLASM MALIGNANT STAGE UNSPECIFIED [None]
